FAERS Safety Report 7736891-6 (Version None)
Quarter: 2011Q3

REPORT INFORMATION
  Report Type: 
  Country: None (occurrence: None)
  Receive Date: 20110908
  Receipt Date: 20110830
  Transmission Date: 20111222
  Serious: Yes (Hospitalization)
  Sender: FDA-Public Use
  Company Number: PHHY2011FR78158

PATIENT
  Sex: Female

DRUGS (7)
  1. LEVOTHYROXINE SODIUM [Concomitant]
     Dosage: 50 UG, UNK
  2. XYZAL [Concomitant]
     Dosage: UNK UKN, UNK
  3. BISOPROLOL FUMARATE [Concomitant]
     Dosage: UNK UKN, UNK
  4. EXELON [Suspect]
     Dosage: 4.6 MG/ 24 HOUR
     Route: 062
     Dates: start: 20110210, end: 20110201
  5. ASPIRIN [Concomitant]
     Dosage: UNK UKN, UNK
  6. PLAVIX [Concomitant]
     Dosage: UNK UKN, UNK
  7. MEMANTINE HYDROCHLORIDE [Concomitant]
     Dosage: UNK UKN, UNK
     Dates: start: 20110411

REACTIONS (4)
  - WOUND [None]
  - ECZEMA [None]
  - SUPERINFECTION [None]
  - DRUG ERUPTION [None]
